FAERS Safety Report 9177761 (Version 2)
Quarter: 2012Q4

REPORT INFORMATION
  Report Type: 
  Country: CN (occurrence: CN)
  Receive Date: 20121009
  Receipt Date: 20121018
  Transmission Date: 20130627
  Serious: Yes (Death)
  Sender: FDA-Public Use
  Company Number: CN-BRACCO-000385

PATIENT
  Age: 54 Year
  Sex: Male

DRUGS (4)
  1. DECADRON [Concomitant]
     Dates: start: 20121004, end: 20121004
  2. IOPAMIRO [Suspect]
     Indication: HEADACHE
     Route: 042
     Dates: start: 20121004, end: 20121004
  3. IOPAMIRO [Suspect]
     Indication: ANGIOGRAM
     Dosage: Pre-testing dose
     Route: 042
     Dates: start: 20121004, end: 20121004
  4. IOPAMIRO [Suspect]
     Indication: VISION BLURRED
     Dosage: Pre-testing dose
     Route: 042
     Dates: start: 20121004, end: 20121004

REACTIONS (2)
  - Death [Fatal]
  - Headache [Unknown]
